FAERS Safety Report 11847686 (Version 1)
Quarter: 2015Q4

REPORT INFORMATION
  Report Type: Spontaneous
  Country: JP (occurrence: JP)
  Receive Date: 20151217
  Receipt Date: 20151217
  Transmission Date: 20160305
  Serious: Yes (Death, Other)
  Sender: FDA-Public Use
  Company Number: PHJP1900JP001326

PATIENT
  Age: 83 Year
  Sex: Male

DRUGS (4)
  1. VOLTAREN [Suspect]
     Active Substance: DICLOFENAC SODIUM
     Dosage: 50 MG, QD
     Route: 065
     Dates: start: 19820712, end: 19820729
  2. L-KEFLEX [Concomitant]
     Indication: PRODUCT USED FOR UNKNOWN INDICATION
     Dosage: 2000 MG, UNK
     Route: 048
     Dates: start: 19820729, end: 19820731
  3. VOLTAREN [Suspect]
     Active Substance: DICLOFENAC SODIUM
     Indication: PRODUCT USED FOR UNKNOWN INDICATION
     Dosage: 50 MG, QD
     Route: 065
     Dates: start: 19820127, end: 19820210
  4. VOLTAREN [Suspect]
     Active Substance: DICLOFENAC SODIUM
     Dosage: 50 MG, QD
     Route: 065
     Dates: start: 19820305, end: 19820320

REACTIONS (9)
  - Prostatitis [Unknown]
  - Pneumonia [Fatal]
  - Pyrexia [Unknown]
  - Melaena [Fatal]
  - Feeding disorder [Unknown]
  - Shock [Unknown]
  - Diarrhoea [Unknown]
  - Haemorrhage [Unknown]
  - Abdominal pain lower [Unknown]
